FAERS Safety Report 7247176-9 (Version None)
Quarter: 2011Q1

REPORT INFORMATION
  Report Type: 
  Country: None (occurrence: None)
  Receive Date: 20110127
  Receipt Date: 20110120
  Transmission Date: 20110831
  Serious: Yes (Other)
  Sender: FDA-Public Use
  Company Number: US-JNJFOC-20110106132

PATIENT
  Age: 53 Year
  Sex: Female

DRUGS (1)
  1. DURAGESIC-50 [Suspect]
     Indication: ILL-DEFINED DISORDER
     Route: 062

REACTIONS (4)
  - INAPPROPRIATE SCHEDULE OF DRUG ADMINISTRATION [None]
  - INTENTIONAL DRUG MISUSE [None]
  - NEOPLASM [None]
  - BLADDER CANCER [None]
